FAERS Safety Report 21228817 (Version 1)
Quarter: 2022Q3

REPORT INFORMATION
  Report Type: Spontaneous
  Country: US (occurrence: US)
  Receive Date: 20220818
  Receipt Date: 20220818
  Transmission Date: 20221027
  Serious: Yes (Hospitalization, Other)
  Sender: FDA-Public Use
  Company Number: US-BRISTOL-MYERS SQUIBB COMPANY-2022-091064

PATIENT
  Age: 58 Year
  Sex: Female
  Weight: 42.2 kg

DRUGS (11)
  1. ELIQUIS [Suspect]
     Active Substance: APIXABAN
     Indication: Product used for unknown indication
     Route: 065
     Dates: start: 202206, end: 202207
  2. ORENITRAM [Suspect]
     Active Substance: TREPROSTINIL
     Indication: Pulmonary arterial hypertension
     Dosage: EXTENDED RELEASE
     Route: 048
     Dates: end: 20220510
  3. ORENITRAM [Suspect]
     Active Substance: TREPROSTINIL
     Dosage: EXTENDED RELEASE
     Route: 048
     Dates: start: 20220713
  4. ORENITRAM [Suspect]
     Active Substance: TREPROSTINIL
     Dosage: EXTENDED RELEASE
     Route: 048
     Dates: end: 202207
  5. TYVASO [Suspect]
     Active Substance: TREPROSTINIL
     Indication: Pulmonary arterial hypertension
     Dosage: 0.6 MG/ML
     Route: 055
     Dates: start: 20220502, end: 2022
  6. TYVASO [Suspect]
     Active Substance: TREPROSTINIL
     Dosage: 18-72 ?G, QID
     Route: 055
     Dates: start: 2022, end: 202206
  7. TYVASO [Suspect]
     Active Substance: TREPROSTINIL
     Route: 055
     Dates: start: 2022, end: 2022
  8. TYVASO [Suspect]
     Active Substance: TREPROSTINIL
     Route: 055
     Dates: start: 2022
  9. TYVASO [Suspect]
     Active Substance: TREPROSTINIL
     Route: 055
     Dates: start: 2022, end: 202207
  10. OPSUMIT [Concomitant]
     Active Substance: MACITENTAN
  11. SILDENAFIL CITRATE [Concomitant]
     Active Substance: SILDENAFIL CITRATE
     Indication: Product used for unknown indication

REACTIONS (7)
  - Epistaxis [Unknown]
  - Hypotension [Unknown]
  - Fatigue [Unknown]
  - Oedema [Unknown]
  - Respiratory failure [Unknown]
  - Feeling jittery [Unknown]
  - Pruritus [Unknown]

NARRATIVE: CASE EVENT DATE: 20220701
